FAERS Safety Report 7203480-1 (Version None)
Quarter: 2010Q4

REPORT INFORMATION
  Report Type: 
  Country: None (occurrence: None)
  Receive Date: 20101220
  Receipt Date: 20101206
  Transmission Date: 20110411
  Serious: Yes (Hospitalization, Other)
  Sender: FDA-Public Use
  Company Number: WAES 1012USA01359

PATIENT
  Age: 70 Year
  Sex: Male
  Weight: 78.0187 kg

DRUGS (18)
  1. CAP VORINOSTAT 100 MG [Suspect]
     Indication: MULTIPLE MYELOMA
     Dosage: 300 MG/DAILY/PO
     Route: 048
     Dates: start: 20101126, end: 20101203
  2. BORTEZOMIB [Suspect]
     Indication: MULTIPLE MYELOMA
     Dosage: 1.9MG/DAILY/IV
     Route: 042
     Dates: start: 20101126, end: 20101130
  3. DOXIL [Suspect]
     Indication: MULTIPLE MYELOMA
     Dosage: 43.9 MG/DAILY/IV
     Route: 042
     Dates: start: 20101126, end: 20101126
  4. DIOVAN [Suspect]
     Indication: HYPERTENSION
     Dosage: 160 MG/DAILY/PO
     Route: 048
     Dates: start: 20090901, end: 20100212
  5. ATIVAN [Concomitant]
  6. LANTUS [Concomitant]
  7. NOVOLOG [Concomitant]
  8. ZOFRAN [Concomitant]
  9. ACYCLOVIR [Concomitant]
  10. ALLOPURINOL [Concomitant]
  11. ALUMINUM HYDROXIDE (+) DIPHENHYDRAMINE [Concomitant]
  12. CLONIDINE [Concomitant]
  13. FENTANYL [Concomitant]
  14. GABAPENTIN [Concomitant]
  15. IMMUNE GLOBULIN NOS [Concomitant]
  16. OMEPRAZOLE [Concomitant]
  17. OXYCODONE [Concomitant]
  18. VITAMIN D (UNSPECIFIED) [Concomitant]

REACTIONS (3)
  - DRUG DOSE OMISSION [None]
  - ELECTROCARDIOGRAM QT PROLONGED [None]
  - HYPERTENSIVE CRISIS [None]
